FAERS Safety Report 26058505 (Version 1)
Quarter: 2025Q4

REPORT INFORMATION
  Report Type: Spontaneous
  Country: ME (occurrence: ME)
  Receive Date: 20251118
  Receipt Date: 20251118
  Transmission Date: 20260117
  Serious: Yes (Other)
  Sender: RANBAXY
  Company Number: ME-SUN PHARMACEUTICAL INDUSTRIES INC-2025RR-536930

PATIENT
  Age: 13 Year
  Sex: Male

DRUGS (23)
  1. VALPROIC ACID [Suspect]
     Active Substance: VALPROIC ACID
     Indication: Jeavons syndrome
     Dosage: UNK
     Route: 065
  2. VALPROIC ACID [Suspect]
     Active Substance: VALPROIC ACID
     Dosage: 45 MILLIGRAM/KILOGRAM, DAILY
     Route: 065
  3. CLOBAZAM [Suspect]
     Active Substance: CLOBAZAM
     Indication: Jeavons syndrome
     Dosage: 0.8 MILLIGRAM/KILOGRAM, DAILY
     Route: 065
  4. CLOBAZAM [Suspect]
     Active Substance: CLOBAZAM
     Dosage: 0.4 MILLIGRAM/KILOGRAM, DAILY
     Route: 065
  5. LEVETIRACETAM [Suspect]
     Active Substance: LEVETIRACETAM
     Indication: Jeavons syndrome
     Dosage: UNK
     Route: 065
  6. LEVETIRACETAM [Suspect]
     Active Substance: LEVETIRACETAM
     Dosage: 45 MILLIGRAM/KILOGRAM, DAILY
     Route: 065
  7. LEVETIRACETAM [Suspect]
     Active Substance: LEVETIRACETAM
     Dosage: 55 MILLIGRAM/KILOGRAM, DAILY
     Route: 065
  8. LAMOTRIGINE [Suspect]
     Active Substance: LAMOTRIGINE
     Indication: Jeavons syndrome
     Dosage: UNK
     Route: 065
  9. LAMOTRIGINE [Suspect]
     Active Substance: LAMOTRIGINE
     Dosage: 5 MILLIGRAM/KILOGRAM, DAILY
     Route: 065
  10. ETHOSUXIMIDE [Suspect]
     Active Substance: ETHOSUXIMIDE
     Indication: Jeavons syndrome
     Dosage: UNK
     Route: 065
  11. ETHOSUXIMIDE [Suspect]
     Active Substance: ETHOSUXIMIDE
     Dosage: 30 MILLIGRAM/KILOGRAM, DAILY
     Route: 065
  12. TOPIRAMATE [Suspect]
     Active Substance: TOPIRAMATE
     Indication: Jeavons syndrome
     Dosage: UNK
     Route: 065
  13. TOPIRAMATE [Suspect]
     Active Substance: TOPIRAMATE
     Dosage: 5 MILLIGRAM/KILOGRAM, DAILY
     Route: 065
  14. TOPIRAMATE [Suspect]
     Active Substance: TOPIRAMATE
     Dosage: 3 MILLIGRAM/KILOGRAM, DAILY
     Route: 065
  15. ZONISAMIDE [Suspect]
     Active Substance: ZONISAMIDE
     Indication: Jeavons syndrome
     Dosage: 7 MILLIGRAM/KILOGRAM, DAILY
     Route: 065
  16. BRIVARACETAM [Suspect]
     Active Substance: BRIVARACETAM
     Indication: Jeavons syndrome
     Dosage: 1 MILLIGRAM/KILOGRAM, DAILY
     Route: 065
  17. PERAMPANEL [Suspect]
     Active Substance: PERAMPANEL
     Indication: Jeavons syndrome
     Dosage: UNK
     Route: 065
  18. ACETAZOLAMIDE [Suspect]
     Active Substance: ACETAZOLAMIDE
     Indication: Jeavons syndrome
     Dosage: 1000 MILLIGRAM, DAILY
     Route: 065
  19. ACETAZOLAMIDE [Suspect]
     Active Substance: ACETAZOLAMIDE
     Dosage: 500 MILLIGRAM, DAILY
     Route: 065
  20. ACETAZOLAMIDE [Suspect]
     Active Substance: ACETAZOLAMIDE
     Dosage: 750 MILLIGRAM, DAILY
     Route: 065
  21. CLONAZEPAM [Suspect]
     Active Substance: CLONAZEPAM
     Indication: Jeavons syndrome
     Dosage: 0.1 MILLIGRAM/KILOGRAM, DAILY
     Route: 065
  22. CLONAZEPAM [Suspect]
     Active Substance: CLONAZEPAM
     Dosage: 0.2 MILLIGRAM/KILOGRAM, DAILY
     Route: 065
  23. CLONAZEPAM [Suspect]
     Active Substance: CLONAZEPAM
     Dosage: 0.3 MILLIGRAM/KILOGRAM, DAILY
     Route: 065

REACTIONS (14)
  - Somnolence [Recovering/Resolving]
  - Disease recurrence [Recovering/Resolving]
  - Hallucination, visual [Recovering/Resolving]
  - Constipation [Unknown]
  - Intellectual disability [Recovering/Resolving]
  - Abdominal pain [Unknown]
  - Therapeutic product effect incomplete [Unknown]
  - Aggression [Recovering/Resolving]
  - Gastrointestinal disorder [Recovering/Resolving]
  - Suicidal ideation [Recovering/Resolving]
  - Social avoidant behaviour [Recovering/Resolving]
  - Drug ineffective [Unknown]
  - Anhidrosis [Recovering/Resolving]
  - Attention deficit hyperactivity disorder [Recovering/Resolving]
